FAERS Safety Report 10591881 (Version 6)
Quarter: 2016Q1

REPORT INFORMATION
  Report Type: Report from Study
  Country: DE (occurrence: DE)
  Receive Date: 20141119
  Receipt Date: 20160212
  Transmission Date: 20160525
  Serious: Yes (Hospitalization)
  Sender: FDA-Public Use
  Company Number: DE-ROCHE-1491208

PATIENT
  Age: 60 Year
  Sex: Male
  Weight: 85 kg

DRUGS (30)
  1. OBINUTUZUMAB [Suspect]
     Active Substance: OBINUTUZUMAB
     Dosage: CYCLE 4 DAY 1 INFUSION RATE 400
     Route: 042
     Dates: start: 20141015, end: 20141015
  2. CLEMASTIN [Concomitant]
     Active Substance: CLEMASTINE
     Route: 042
     Dates: start: 20140723
  3. MCP RETARD [Concomitant]
     Route: 048
     Dates: start: 20140919, end: 20140928
  4. OBINUTUZUMAB [Suspect]
     Active Substance: OBINUTUZUMAB
     Dosage: CYCLE 3 DAY 1 INFUSION RATE 400
     Route: 042
     Dates: start: 20140917, end: 20140917
  5. BENDAMUSTINE [Suspect]
     Active Substance: BENDAMUSTINE
     Indication: CHRONIC LYMPHOCYTIC LEUKAEMIA
     Dosage: CYCLE 1 DAY 1, MOST RECENT DOSE WAS ON 13/NOV/2014
     Route: 042
     Dates: start: 20140723, end: 20140723
  6. BENDAMUSTINE [Suspect]
     Active Substance: BENDAMUSTINE
     Dosage: CYCLE 2 DAY 1
     Route: 042
     Dates: start: 20140820, end: 20140820
  7. FENISTIL (GERMANY) [Concomitant]
     Route: 042
     Dates: start: 20140820
  8. OBINUTUZUMAB [Suspect]
     Active Substance: OBINUTUZUMAB
     Indication: CHRONIC LYMPHOCYTIC LEUKAEMIA
     Dosage: INFUSION RATE 25 ( CYCLE 1 DAY 1 ), THE LAST DOSE PRIOR TO THE SAE WAS 12/NOV/2014
     Route: 042
     Dates: start: 20140723
  9. OBINUTUZUMAB [Suspect]
     Active Substance: OBINUTUZUMAB
     Dosage: CYCLE 2 DAY 1 INFUSION RATE 400
     Route: 042
     Dates: start: 20140820, end: 20140820
  10. OBINUTUZUMAB [Suspect]
     Active Substance: OBINUTUZUMAB
     Dosage: CYCLE 1 DAY 2 INFUSION RATE 400
     Route: 042
     Dates: start: 20140724, end: 20140724
  11. BENDAMUSTINE [Suspect]
     Active Substance: BENDAMUSTINE
     Dosage: CYCLE 4 DAY 1
     Route: 042
     Dates: start: 20141015, end: 20141015
  12. DEXAMETHASONE. [Concomitant]
     Active Substance: DEXAMETHASONE
     Route: 048
     Dates: start: 20140722, end: 20140723
  13. DEXAMETHASONE. [Concomitant]
     Active Substance: DEXAMETHASONE
     Route: 042
     Dates: start: 20140723
  14. METOCLOPRAMIDE HCL [Concomitant]
     Active Substance: METOCLOPRAMIDE HYDROCHLORIDE
     Dosage: AS REQUIRED
     Route: 048
     Dates: start: 20140723
  15. OBINUTUZUMAB [Suspect]
     Active Substance: OBINUTUZUMAB
     Dosage: CYCLE 1 DAY 15 INFUSION RATE 400
     Route: 042
     Dates: start: 20140806, end: 20140806
  16. BENDAMUSTINE [Suspect]
     Active Substance: BENDAMUSTINE
     Dosage: CYCLE 4 DAY 2
     Route: 042
     Dates: start: 20141016, end: 20141016
  17. L-THYROX [Concomitant]
     Active Substance: LEVOTHYROXINE SODIUM
     Route: 030
     Dates: start: 201211
  18. MCP [Concomitant]
     Active Substance: METOCLOPRAMIDE HYDROCHLORIDE
     Route: 065
     Dates: start: 20140723
  19. PERFALGAN [Concomitant]
     Active Substance: ACETAMINOPHEN
     Dosage: SINGLE DOSE
     Route: 042
     Dates: start: 20140723, end: 20140723
  20. PARACETAMOL [Concomitant]
     Active Substance: ACETAMINOPHEN
     Route: 048
     Dates: start: 20140723
  21. BENDAMUSTINE [Suspect]
     Active Substance: BENDAMUSTINE
     Dosage: CYCLE 3 DAY 2
     Route: 042
     Dates: start: 20140918, end: 20140918
  22. MCP [Concomitant]
     Active Substance: METOCLOPRAMIDE HYDROCHLORIDE
     Route: 065
     Dates: start: 20141112
  23. PARACETAMOL [Concomitant]
     Active Substance: ACETAMINOPHEN
     Route: 048
     Dates: start: 20140725, end: 20140726
  24. OBINUTUZUMAB [Suspect]
     Active Substance: OBINUTUZUMAB
     Dosage: CYCLE 1 DAY 8 INFUSION RATE 400
     Route: 042
     Dates: start: 20140730, end: 20140730
  25. BENDAMUSTINE [Suspect]
     Active Substance: BENDAMUSTINE
     Dosage: CYCLE 1 DAY 2
     Route: 042
     Dates: start: 20140724, end: 20140724
  26. BENDAMUSTINE [Suspect]
     Active Substance: BENDAMUSTINE
     Dosage: CYCLE 3 DAY 1
     Route: 042
     Dates: start: 20140917, end: 20140917
  27. GRANISETRON [Concomitant]
     Active Substance: GRANISETRON
     Route: 042
     Dates: start: 20140723
  28. MCP RETARD [Concomitant]
     Route: 065
     Dates: start: 20141112
  29. PREDNISOLUT [Concomitant]
     Active Substance: PREDNISOLONE
     Dosage: SINGLE DOSE
     Route: 042
     Dates: start: 20140723, end: 20140723
  30. PREDNISOLONE. [Concomitant]
     Active Substance: PREDNISOLONE
     Route: 042
     Dates: start: 20140723

REACTIONS (1)
  - Spinal pain [Recovered/Resolved]

NARRATIVE: CASE EVENT DATE: 20141112
